FAERS Safety Report 7651050-3 (Version None)
Quarter: 2011Q3

REPORT INFORMATION
  Report Type: 
  Country: None (occurrence: None)
  Receive Date: 20110802
  Receipt Date: 20110720
  Transmission Date: 20111222
  Serious: Yes (Other)
  Sender: FDA-Public Use
  Company Number: US-ASTRAZENECA-2009UW00602

PATIENT
  Age: 644 Month
  Sex: Male
  Weight: 81.6 kg

DRUGS (5)
  1. SEROQUEL [Suspect]
     Indication: BIPOLAR DISORDER
     Route: 048
     Dates: start: 20020101, end: 20080101
  2. DIVALPROEX SODIUM [Concomitant]
     Dates: start: 20050101
  3. CLONAZEPAM [Concomitant]
     Dates: start: 20050101
  4. ABILIFY [Concomitant]
     Dates: start: 20050101
  5. BUPROPION HCL [Concomitant]
     Dates: start: 20050101

REACTIONS (2)
  - DIABETES MELLITUS [None]
  - DIABETIC NEUROPATHY [None]
